FAERS Safety Report 9268809 (Version 1)
Quarter: 2013Q2

REPORT INFORMATION
  Report Type: Spontaneous
  Country: US (occurrence: US)
  Receive Date: 20130502
  Receipt Date: 20130502
  Transmission Date: 20140414
  Serious: Yes (Hospitalization)
  Sender: FDA-Public Use
  Company Number: US-AMGEN-USASP2013029456

PATIENT
  Age: 24 Year
  Sex: Female

DRUGS (2)
  1. ENBREL [Suspect]
     Indication: PSORIATIC ARTHROPATHY
     Dosage: 50 MG, 2 TIMES/WK
     Dates: start: 2009, end: 201210
  2. HUMIRA [Concomitant]
     Dosage: UNK
     Dates: start: 201211

REACTIONS (5)
  - Loss of consciousness [Not Recovered/Not Resolved]
  - Dyskinesia [Not Recovered/Not Resolved]
  - Head titubation [Not Recovered/Not Resolved]
  - Balance disorder [Not Recovered/Not Resolved]
  - Asthenia [Not Recovered/Not Resolved]
